FAERS Safety Report 5706786-8 (Version None)
Quarter: 2008Q2

REPORT INFORMATION
  Report Type: 
  Country: None (occurrence: None)
  Receive Date: 20080415
  Receipt Date: 20080415
  Transmission Date: 20081010
  Serious: No
  Sender: FDA-Public Use
  Company Number: None

PATIENT
  Age: 55 Year
  Sex: Female
  Weight: 75.2971 kg

DRUGS (1)
  1. ACTONEL [Suspect]
     Dosage: 1 PILL WEEKLY PO
     Route: 048
     Dates: start: 20040501, end: 20070501

REACTIONS (2)
  - GAIT DISTURBANCE [None]
  - PAIN IN EXTREMITY [None]
